FAERS Safety Report 16818933 (Version 1)
Quarter: 2019Q3

REPORT INFORMATION
  Report Type: Report from Study
  Country: US (occurrence: US)
  Receive Date: 20190917
  Receipt Date: 20190917
  Transmission Date: 20191005
  Serious: Yes (Hospitalization)
  Sender: FDA-Public Use
  Company Number: US-INCYTE CORPORATION-2019IN009275

PATIENT

DRUGS (1)
  1. JAKAFI [Suspect]
     Active Substance: RUXOLITINIB
     Indication: CHRONIC MYELOMONOCYTIC LEUKAEMIA
     Dosage: 15 MILLIGRAM, BID
     Route: 048

REACTIONS (3)
  - Off label use [Unknown]
  - White blood cell count abnormal [Not Recovered/Not Resolved]
  - Infection [Not Recovered/Not Resolved]
